FAERS Safety Report 14700445 (Version 1)
Quarter: 2018Q1

REPORT INFORMATION
  Report Type: Spontaneous
  Country: US (occurrence: US)
  Receive Date: 20180330
  Receipt Date: 20180330
  Transmission Date: 20180509
  Serious: No
  Sender: FDA-Public Use
  Company Number: US-ASTRAZENECA-2018SE26968

PATIENT
  Age: 890 Month
  Sex: Female

DRUGS (1)
  1. TUDORZA PRESSAIR [Suspect]
     Active Substance: ACLIDINIUM BROMIDE
     Indication: CHRONIC OBSTRUCTIVE PULMONARY DISEASE
     Route: 055

REACTIONS (14)
  - Weight decreased [Unknown]
  - Rheumatoid arthritis [Unknown]
  - Muscle spasms [Unknown]
  - Movement disorder [Unknown]
  - Malaise [Unknown]
  - Intentional product misuse [Unknown]
  - Product quality issue [Unknown]
  - Fatigue [Unknown]
  - Feeling abnormal [Unknown]
  - Ill-defined disorder [Unknown]
  - Pain [Unknown]
  - Decreased appetite [Unknown]
  - Gait disturbance [Unknown]
  - Body height decreased [Unknown]

NARRATIVE: CASE EVENT DATE: 201711
